FAERS Safety Report 5177409-4 (Version None)
Quarter: 2006Q4

REPORT INFORMATION
  Report Type: 
  Country: None (occurrence: None)
  Receive Date: 20061218
  Receipt Date: 20061213
  Transmission Date: 20070319
  Serious: Yes (Other)
  Sender: FDA-Public Use
  Company Number: GB-SHR-GB-2006-039063

PATIENT
  Age: 21 Year
  Sex: Female

DRUGS (2)
  1. YASMIN [Suspect]
     Indication: ORAL CONTRACEPTION
     Dosage: 1DF
     Dates: start: 20061125, end: 20061128
  2. CERAZETTE [Concomitant]
     Indication: CONTRACEPTION
     Dosage: 1DF
     Dates: start: 20060913, end: 20060922

REACTIONS (3)
  - HYPOAESTHESIA FACIAL [None]
  - LIP SWELLING [None]
  - SWOLLEN TONGUE [None]
